FAERS Safety Report 6339763-7 (Version None)
Quarter: 2009Q3

REPORT INFORMATION
  Report Type: 
  Country: None (occurrence: None)
  Receive Date: 20090903
  Receipt Date: 20090824
  Transmission Date: 20100115
  Serious: Yes (Life-Threatening, Hospitalization, Other)
  Sender: FDA-Public Use
  Company Number: US-ELI_LILLY_AND_COMPANY-US200907003129

PATIENT
  Sex: Female
  Weight: 117.91 kg

DRUGS (12)
  1. CYMBALTA [Suspect]
     Indication: DEPRESSION
     Dosage: 20 MG, 2/D
     Dates: start: 20070611
  2. CYMBALTA [Suspect]
     Dosage: 60 MG, UNK
     Dates: end: 20090501
  3. LEXAPRO [Concomitant]
     Indication: DEPRESSION
     Dosage: 20 MG, DAILY (1/D)
     Dates: end: 20070611
  4. LEXAPRO [Concomitant]
     Dosage: 10 MG, EACH MORNING
     Dates: end: 20090601
  5. KLONOPIN [Concomitant]
     Dosage: UNK, AS NEEDED
  6. KLONOPIN [Concomitant]
     Dosage: 1 MG, 4/D
  7. DEPAKOTE [Concomitant]
     Indication: AFFECTIVE DISORDER
     Dosage: 500 MG, 2/D
  8. AMBIEN [Concomitant]
     Dosage: 10 MG, EACH EVENING
  9. AMBIEN [Concomitant]
     Dosage: 20 MG, EACH EVENING
  10. TRAZODONE [Concomitant]
     Dosage: 300 MG, EACH EVENING
  11. TRAZODONE [Concomitant]
     Dosage: 450 MG, EACH EVENING
  12. LORAZEPAM [Concomitant]
     Dosage: 60 MG, EACH EVENING

REACTIONS (4)
  - ACUTE HEPATIC FAILURE [None]
  - ADVERSE REACTION [None]
  - ENDOTRACHEAL INTUBATION [None]
  - FALL [None]
